FAERS Safety Report 8984636 (Version 1)
Quarter: 2012Q4

REPORT INFORMATION
  Report Type: Spontaneous
  Country: US (occurrence: None)
  Receive Date: 20121218
  Receipt Date: 20121218
  Transmission Date: 20130627
  Serious: Yes (Hospitalization, Disabling)
  Sender: FDA-Public Use
  Company Number: B0852260A

PATIENT
  Age: 32 Year
  Sex: Female

DRUGS (10)
  1. COMBIVIR [Suspect]
     Indication: HIV INFECTION
  2. ATAZANAVIR [Suspect]
     Indication: HIV INFECTION
  3. RITONAVIR [Suspect]
     Indication: HIV INFECTION
  4. ZIDOVUDINE [Suspect]
     Indication: HIV INFECTION
  5. HYDROMORPHONE [Suspect]
     Indication: PAIN
  6. PARACETAMOL [Suspect]
     Indication: PAIN
  7. GABAPENTIN [Suspect]
     Indication: PAIN
  8. LIDOCAINE HYDROCHLORIDE [Suspect]
  9. OXYTOCIN [Suspect]
     Indication: NORMAL LABOUR
  10. FENTANYL [Suspect]
     Indication: ANALGESIC THERAPY

REACTIONS (4)
  - Epidural lipomatosis [None]
  - Respiratory depression [None]
  - Neuropathy peripheral [None]
  - Maternal exposure during pregnancy [None]
